FAERS Safety Report 20695888 (Version 1)
Quarter: 2022Q2

REPORT INFORMATION
  Report Type: Spontaneous
  Country: US (occurrence: None)
  Receive Date: 20220408
  Receipt Date: 20220408
  Transmission Date: 20220721
  Serious: Yes (Hospitalization)
  Sender: FDA-Public Use
  Company Number: None

PATIENT
  Sex: Female

DRUGS (18)
  1. MYCOPHENOLIC ACID [Suspect]
     Active Substance: MYCOPHENOLIC ACID
     Indication: Renal transplant
     Dosage: TAKE 2 TABLETS BY MOUTH TWICE DAILY?
     Route: 048
     Dates: start: 20171024
  2. ALBUTEROL [Concomitant]
     Active Substance: ALBUTEROL
  3. AMLODIPINE [Concomitant]
     Active Substance: AMLODIPINE BESYLATE
  4. ASPIRIN [Concomitant]
     Active Substance: ASPIRIN
  5. ATORVASTATIN [Concomitant]
     Active Substance: ATORVASTATIN
  6. AZELASTINE SPR 0.1% [Concomitant]
  7. BREO ELLIPTA INH [Concomitant]
  8. CARVEDILOL [Concomitant]
     Active Substance: CARVEDILOL
  9. CARVEDILOL [Concomitant]
     Active Substance: CARVEDILOL
  10. DULERA AER [Concomitant]
  11. ESCITALOPRAM [Concomitant]
     Active Substance: ESCITALOPRAM OXALATE
  12. LANTUS [Concomitant]
     Active Substance: INSULIN GLARGINE
  13. LOVAZA [Concomitant]
     Active Substance: OMEGA-3-ACID ETHYL ESTERS
  14. MYFORTIC [Concomitant]
     Active Substance: MYCOPHENOLATE SODIUM
  15. PANTOPRAZOLE [Concomitant]
     Active Substance: PANTOPRAZOLE
  16. RALOXIFENE [Concomitant]
     Active Substance: RALOXIFENE
  17. SINGULAIR CHW [Concomitant]
  18. TACROLIMUS [Concomitant]
     Active Substance: TACROLIMUS

REACTIONS (6)
  - Fluid retention [None]
  - Arthralgia [None]
  - Constipation [None]
  - Diarrhoea [None]
  - Nausea [None]
  - Vomiting [None]
